FAERS Safety Report 14484920 (Version 1)
Quarter: 2018Q1

REPORT INFORMATION
  Report Type: Spontaneous
  Country: US (occurrence: US)
  Receive Date: 20180205
  Receipt Date: 20180205
  Transmission Date: 20180509
  Serious: No
  Sender: FDA-Public Use
  Company Number: US-GLAXOSMITHKLINE-US2018015874

PATIENT
  Age: 76 Year
  Sex: Male

DRUGS (1)
  1. VOLTAREN [Suspect]
     Active Substance: DICLOFENAC SODIUM
     Indication: ARTHRALGIA
     Dosage: 2 G, UNK
     Dates: start: 2017, end: 201707

REACTIONS (4)
  - Application site pain [Unknown]
  - Application site reaction [Unknown]
  - Application site pruritus [Unknown]
  - Underdose [Unknown]

NARRATIVE: CASE EVENT DATE: 201706
